FAERS Safety Report 5071264-9 (Version None)
Quarter: 2006Q3

REPORT INFORMATION
  Report Type: 
  Country: None (occurrence: None)
  Receive Date: 20060804
  Receipt Date: 20060726
  Transmission Date: 20061208
  Serious: Yes (Other)
  Sender: FDA-Public Use
  Company Number: US-AMGEN-US187791

PATIENT
  Sex: Female

DRUGS (2)
  1. ENBREL [Suspect]
     Indication: PSORIASIS
     Route: 058
     Dates: start: 20030101
  2. UNSPECIFIED ANTINEOPLASTIC AGENT [Concomitant]
     Route: 065

REACTIONS (2)
  - BREAST CANCER [None]
  - SARCOIDOSIS [None]
